FAERS Safety Report 7021105-5 (Version None)
Quarter: 2010Q3

REPORT INFORMATION
  Report Type: 
  Country: None (occurrence: None)
  Receive Date: 20100929
  Receipt Date: 20100825
  Transmission Date: 20110219
  Serious: Yes (Hospitalization)
  Sender: FDA-Public Use
  Company Number: PHHO2010BE12846

PATIENT
  Sex: Female
  Weight: 99.2 kg

DRUGS (6)
  1. CGS 20267 T30748+TAB [Suspect]
     Indication: BREAST CANCER
     Dosage: 2.5 MG, QD
     Route: 048
     Dates: start: 20090615
  2. CAPECITABINE [Concomitant]
     Dosage: 825 MG/M^2, 2XDAY
     Route: 048
  3. TAMOXIFEN CITRATE [Concomitant]
     Dosage: 20 MG, DAILY
     Route: 048
  4. ZESTRIL [Concomitant]
     Indication: HYPERTENSION
     Dosage: 20 MG, PRN
     Route: 048
     Dates: start: 20090311
  5. VOLTAREN [Concomitant]
     Indication: ARTHRALGIA
     Dosage: 75 MG, PRN
     Route: 048
     Dates: start: 20100315
  6. GAMBARAN [Concomitant]
     Indication: ARTHRALGIA

REACTIONS (4)
  - AGITATION [None]
  - HYPERTENSION [None]
  - MOOD ALTERED [None]
  - STRESS CARDIOMYOPATHY [None]
